FAERS Safety Report 19233962 (Version 1)
Quarter: 2021Q2

REPORT INFORMATION
  Report Type: Spontaneous
  Country: US (occurrence: US)
  Receive Date: 20210508
  Receipt Date: 20210508
  Transmission Date: 20210717
  Serious: No
  Sender: FDA-Public Use
  Company Number: US-SA-2021SA150564

PATIENT
  Age: 25 Year
  Sex: Female

DRUGS (7)
  1. VIMPAT [Concomitant]
     Active Substance: LACOSAMIDE
  2. LEVRON [LEVETIRACETAM] [Concomitant]
  3. DUPIXENT [Suspect]
     Active Substance: DUPILUMAB
     Indication: DERMATITIS ATOPIC
     Dosage: 300 MG, QOW
     Route: 058
     Dates: start: 20201023
  4. BACLOFEN. [Concomitant]
     Active Substance: BACLOFEN
  5. CITALOPRAM [Concomitant]
     Active Substance: CITALOPRAM HYDROBROMIDE
  6. DIAZEPAM. [Concomitant]
     Active Substance: DIAZEPAM
  7. COVID?19 VACCINE NOS. [Suspect]
     Active Substance: COVID-19 VACCINE NOS
     Indication: COVID-19 IMMUNISATION

REACTIONS (5)
  - Product dose omission issue [Unknown]
  - Sleep disorder [Not Recovered/Not Resolved]
  - Dermatitis atopic [Recovering/Resolving]
  - Discomfort [Not Recovered/Not Resolved]
  - Rash [Recovering/Resolving]

NARRATIVE: CASE EVENT DATE: 202104
